FAERS Safety Report 7038113-0 (Version None)
Quarter: 2010Q4

REPORT INFORMATION
  Report Type: 
  Country: None (occurrence: None)
  Receive Date: 20101011
  Receipt Date: 20101004
  Transmission Date: 20110411
  Serious: Yes (Hospitalization, Other)
  Sender: FDA-Public Use
  Company Number: PHHY2010US66525

PATIENT
  Sex: Male

DRUGS (1)
  1. TOBI [Suspect]
     Indication: CYSTIC FIBROSIS
     Dosage: 300 MG, BID
     Dates: start: 20100601, end: 20100701

REACTIONS (6)
  - CONVULSION [None]
  - DEHYDRATION [None]
  - DIARRHOEA [None]
  - EAR INFECTION [None]
  - EAR TUBE INSERTION [None]
  - URINARY TRACT INFECTION [None]
